FAERS Safety Report 6415020-5 (Version None)
Quarter: 2009Q4

REPORT INFORMATION
  Report Type: 
  Country: None (occurrence: None)
  Receive Date: 20091026
  Receipt Date: 20090819
  Transmission Date: 20100525
  Serious: No
  Sender: FDA-Public Use
  Company Number: US-ABBOTT-09P-163-0593856-00

PATIENT
  Sex: Female
  Weight: 61.744 kg

DRUGS (3)
  1. LUPRON DEPOT [Suspect]
     Indication: DRUG USE FOR UNKNOWN INDICATION
     Route: 050
     Dates: start: 20081201, end: 20090201
  2. LUPRON DEPOT [Suspect]
  3. LUPRON DEPOT [Suspect]
     Indication: DRUG USE FOR UNKNOWN INDICATION
     Dates: start: 20090301

REACTIONS (3)
  - AMENORRHOEA [None]
  - BLOOD OESTROGEN DECREASED [None]
  - HOT FLUSH [None]
